FAERS Safety Report 5616159-4 (Version None)
Quarter: 2008Q1

REPORT INFORMATION
  Report Type: 
  Country: None (occurrence: None)
  Receive Date: 20080201
  Receipt Date: 20080124
  Transmission Date: 20080703
  Serious: Yes (Hospitalization)
  Sender: FDA-Public Use
  Company Number: 2008SP001932

PATIENT
  Age: 78 Year
  Sex: Female
  Weight: 74.9 kg

DRUGS (1)
  1. TEMOZOLOMIDE [Suspect]
     Indication: GLIOBLASTOMA
     Dosage: PO
     Route: 048

REACTIONS (2)
  - BLOOD GLUCOSE INCREASED [None]
  - URINARY TRACT INFECTION [None]
